FAERS Safety Report 16430279 (Version 1)
Quarter: 2019Q2

REPORT INFORMATION
  Report Type: Spontaneous
  Country: SE (occurrence: SE)
  Receive Date: 20190614
  Receipt Date: 20190614
  Transmission Date: 20190711
  Serious: Yes (Other)
  Sender: FDA-Public Use
  Company Number: SE-ACCORD-132760

PATIENT
  Age: 83 Year
  Sex: Female

DRUGS (6)
  1. ZOLEDRONIC ACID ACCORD [Suspect]
     Active Substance: ZOLEDRONIC ACID
     Indication: OSTEOPOROSIS
     Dosage: STRENGTH:  4 MG / 5 ML
     Route: 042
     Dates: start: 20181113, end: 20181113
  2. VAXIGRIPTETRA [Suspect]
     Active Substance: INFLUENZA VIRUS VACCINE QUADRIVALENT TYPE A+B
     Indication: INFLUENZA IMMUNISATION
     Dosage: 0,5 ML
     Route: 058
     Dates: start: 20181113, end: 20181113
  3. SIMVASTATIN. [Concomitant]
     Active Substance: SIMVASTATIN
     Dates: start: 20090609
  4. CALCICHEW-D3 SPEARMINT [Concomitant]
     Active Substance: CALCIUM\CHOLECALCIFEROL
     Dates: start: 20100916
  5. MIRTAZAPINE. [Concomitant]
     Active Substance: MIRTAZAPINE
     Dates: start: 20160908
  6. STILNOCT [Concomitant]
     Active Substance: ZOLPIDEM TARTRATE
     Dates: start: 20090609

REACTIONS (2)
  - Neck pain [Recovered/Resolved]
  - Tinnitus [Not Recovered/Not Resolved]

NARRATIVE: CASE EVENT DATE: 20181114
